FAERS Safety Report 8423947-8 (Version None)
Quarter: 2012Q2

REPORT INFORMATION
  Report Type: 
  Country: None (occurrence: None)
  Receive Date: 20120608
  Receipt Date: 20120330
  Transmission Date: 20120825
  Serious: No
  Sender: FDA-Public Use
  Company Number: US-ASTRAZENECA-2012SE21566

PATIENT
  Age: 50 Year
  Sex: Female
  Weight: 52.2 kg

DRUGS (1)
  1. ATACAND [Suspect]
     Indication: HYPERTENSION
     Route: 048
     Dates: start: 20120301

REACTIONS (3)
  - ABDOMINAL DISTENSION [None]
  - FLATULENCE [None]
  - ABDOMINAL PAIN UPPER [None]
